FAERS Safety Report 25432485 (Version 2)
Quarter: 2025Q3

REPORT INFORMATION
  Report Type: Spontaneous
  Country: EU (occurrence: EU)
  Receive Date: 20250613
  Receipt Date: 20250717
  Transmission Date: 20251020
  Serious: Yes (Other)
  Sender: ACCORD
  Company Number: None

PATIENT
  Age: 48 Year
  Sex: Male

DRUGS (8)
  1. QUETIAPINE [Suspect]
     Active Substance: QUETIAPINE
     Indication: Product used for unknown indication
  2. RAMIPRIL [Suspect]
     Active Substance: RAMIPRIL
     Indication: Hypertension
     Dosage: 2.5 MG 2 TABLETS/DAY
     Dates: end: 20250515
  3. CLOTHIAPINE [Concomitant]
     Active Substance: CLOTHIAPINE
  4. LEVOTHYROXINE [Concomitant]
     Active Substance: LEVOTHYROXINE
  5. GABAPENTIN [Concomitant]
     Active Substance: GABAPENTIN
  6. INDOMETHACIN [Concomitant]
     Active Substance: INDOMETHACIN
  7. VALPROATE SODIUM [Concomitant]
     Active Substance: VALPROATE SODIUM
  8. TRAZODONE [Concomitant]
     Active Substance: TRAZODONE HYDROCHLORIDE

REACTIONS (1)
  - Angioedema [Recovering/Resolving]

NARRATIVE: CASE EVENT DATE: 20250514
